FAERS Safety Report 19048534 (Version 1)
Quarter: 2021Q1

REPORT INFORMATION
  Report Type: Report from Study
  Country: US (occurrence: US)
  Receive Date: 20210323
  Receipt Date: 20210323
  Transmission Date: 20210420
  Serious: Yes (Other)
  Sender: FDA-Public Use
  Company Number: US-JNJFOC-20210330936

PATIENT
  Sex: Male
  Weight: 84.1 kg

DRUGS (3)
  1. TADALAFIL. [Concomitant]
     Active Substance: TADALAFIL
     Route: 065
  2. OFEV [Concomitant]
     Active Substance: NINTEDANIB
     Route: 065
  3. MACITENTAN [Suspect]
     Active Substance: MACITENTAN
     Indication: PULMONARY ARTERIAL HYPERTENSION
     Route: 048

REACTIONS (4)
  - Malabsorption [Unknown]
  - Inappropriate schedule of product administration [Unknown]
  - Scleroderma [Unknown]
  - Faeces soft [Unknown]
